FAERS Safety Report 20955125 (Version 2)
Quarter: 2024Q3

REPORT INFORMATION
  Report Type: Spontaneous
  Country: US (occurrence: US)
  Receive Date: 20220614
  Receipt Date: 20240715
  Transmission Date: 20241017
  Serious: No
  Sender: PIERRE FABRE MEDICAMENT
  Company Number: US-PFM-2021-08667

PATIENT
  Sex: Male
  Weight: 11 kg

DRUGS (2)
  1. HEMANGEOL [Suspect]
     Active Substance: PROPRANOLOL HYDROCHLORIDE
     Indication: Haemangioma
     Dosage: 1.9 ML TWICE DAILY BY MOUTH
     Route: 048
  2. HEMANGEOL [Suspect]
     Active Substance: PROPRANOLOL HYDROCHLORIDE
     Dosage: 1.6 ML, BID (2/DAY)
     Route: 065

REACTIONS (7)
  - Infantile spitting up [Not Recovered/Not Resolved]
  - Tremor [Unknown]
  - Tremor [Unknown]
  - Electrocardiogram PR prolongation [Not Recovered/Not Resolved]
  - Palpitations [Unknown]
  - Sleep terror [Not Recovered/Not Resolved]
  - Product dose omission issue [Unknown]
